FAERS Safety Report 26134036 (Version 2)
Quarter: 2025Q4

REPORT INFORMATION
  Report Type: Spontaneous
  Country: US (occurrence: US)
  Receive Date: 20251209
  Receipt Date: 20251217
  Transmission Date: 20260118
  Serious: Yes (Hospitalization, Other)
  Sender: RANBAXY
  Company Number: US-SUN PHARMACEUTICAL INDUSTRIES LTD-2025R1-539863

PATIENT
  Age: 54 Year
  Sex: Male

DRUGS (1)
  1. BACLOFEN [Suspect]
     Active Substance: BACLOFEN
     Indication: Product used for unknown indication
     Dosage: UNK
     Route: 037

REACTIONS (8)
  - Toxicity to various agents [Unknown]
  - Hyperthermia [Unknown]
  - Acute respiratory failure [Unknown]
  - Status epilepticus [Unknown]
  - Coma [Unknown]
  - Pneumonia [Unknown]
  - Deep vein thrombosis [Unknown]
  - Overdose [Unknown]
